FAERS Safety Report 4556449-X (Version None)
Quarter: 2005Q1

REPORT INFORMATION
  Report Type: 
  Country: None (occurrence: None)
  Receive Date: 20050114
  Receipt Date: 20050107
  Transmission Date: 20050727
  Serious: Yes (Other)
  Sender: FDA-Public Use
  Company Number: 2004108374

PATIENT
  Age: 52 Year
  Sex: Female
  Weight: 90.7194 kg

DRUGS (3)
  1. LIPITOR [Suspect]
     Indication: BLOOD CHOLESTEROL INCREASED
     Dosage: 20 MG (20 MG, 1 IN 1 D), ORAL
     Route: 048
     Dates: start: 19900101
  2. PAROXETINE HCL [Concomitant]
  3. LEVOTHYROXINE SODIUM [Concomitant]

REACTIONS (2)
  - BREAST CANCER [None]
  - MYALGIA [None]
